FAERS Safety Report 17490627 (Version 1)
Quarter: 2020Q1

REPORT INFORMATION
  Report Type: Spontaneous
  Country: US (occurrence: US)
  Receive Date: 20200303
  Receipt Date: 20200303
  Transmission Date: 20200409
  Serious: No
  Sender: FDA-Public Use
  Company Number: US-AKORN PHARMACEUTICALS-2019AKN01327

PATIENT
  Age: 22 Year
  Sex: Female

DRUGS (5)
  1. DELTASONE [Suspect]
     Active Substance: PREDNISONE
     Dosage: 2 TABLETS, PER DAY FOR 7 DAYS
     Route: 048
     Dates: start: 20190509, end: 20190515
  2. MYORISAN [Suspect]
     Active Substance: ISOTRETINOIN
     Indication: ACNE CYSTIC
     Dosage: 10 MG, 1X/DAY
     Route: 048
     Dates: start: 20190509, end: 20190529
  3. SPIRONOLACTONE. [Concomitant]
     Active Substance: SPIRONOLACTONE
     Dosage: 1 TABLETS, 2X/DAY
     Route: 048
  4. YAZ [Concomitant]
     Active Substance: DROSPIRENONE\ETHINYL ESTRADIOL
     Dosage: 1 TABLETS, 1X/DAY
     Route: 048
  5. DELTASONE [Suspect]
     Active Substance: PREDNISONE
     Dosage: 1 TABLETS, 1X/DAY FOR 7 DAYS
     Dates: start: 20190516, end: 20190522

REACTIONS (4)
  - Nausea [Unknown]
  - Headache [Recovered/Resolved]
  - Back pain [Recovered/Resolved]
  - Off label use [Recovered/Resolved]

NARRATIVE: CASE EVENT DATE: 201905
